FAERS Safety Report 4807228-7 (Version None)
Quarter: 2005Q4

REPORT INFORMATION
  Report Type: 
  Country: None (occurrence: None)
  Receive Date: 20051024
  Receipt Date: 20051019
  Transmission Date: 20060501
  Serious: Yes (Death, Hospitalization, Other)
  Sender: FDA-Public Use
  Company Number: 2005UW15667

PATIENT
  Age: 65 Year
  Sex: Male

DRUGS (2)
  1. IRESSA [Suspect]
     Indication: RENAL CELL CARCINOMA STAGE UNSPECIFIED
     Dosage: 5 CYCLES
     Route: 048
  2. INTRON A [Suspect]
     Indication: RENAL CELL CARCINOMA STAGE UNSPECIFIED
     Dosage: 5 CYCLES

REACTIONS (4)
  - DEATH [None]
  - PULMONARY EMBOLISM [None]
  - RENAL IMPAIRMENT [None]
  - RESPIRATORY FAILURE [None]
